FAERS Safety Report 13563311 (Version 1)
Quarter: 2017Q2

REPORT INFORMATION
  Report Type: Spontaneous
  Country: IT (occurrence: IT)
  Receive Date: 20170519
  Receipt Date: 20170519
  Transmission Date: 20170830
  Serious: No
  Sender: FDA-Public Use
  Company Number: IT-B. BRAUN MEDICAL INC.-2020980

PATIENT
  Age: 59 Year
  Sex: Female
  Weight: 59 kg

DRUGS (2)
  1. OLIMEL [Concomitant]
     Active Substance: AMINO ACIDS\DEXTROSE\SOYBEAN OIL
     Route: 042
     Dates: start: 20170131
  2. POTASSIUM CHLORIDE FOR INJECTION CONCENTRATE USP 0264-1940-20 [Suspect]
     Active Substance: POTASSIUM CHLORIDE
     Indication: HYPOKALAEMIA
     Route: 042
     Dates: start: 20170205

REACTIONS (2)
  - Injection site erythema [Recovering/Resolving]
  - Injection site pain [Recovering/Resolving]
